FAERS Safety Report 18360840 (Version 1)
Quarter: 2020Q4

REPORT INFORMATION
  Report Type: Report from Study
  Country: CA (occurrence: CA)
  Receive Date: 20201008
  Receipt Date: 20201008
  Transmission Date: 20210114
  Serious: Yes (Hospitalization, Other)
  Sender: FDA-Public Use
  Company Number: CA-HLS-202000397

PATIENT
  Age: 60 Year
  Sex: Female
  Weight: 82 kg

DRUGS (10)
  1. CHLORPROMAZINE. [Concomitant]
     Active Substance: CHLORPROMAZINE
     Dosage: 50MG QHS
     Route: 065
     Dates: start: 1994
  2. ATORVASTATIN [Concomitant]
     Active Substance: ATORVASTATIN
     Dosage: 40 MG PO QHS
     Route: 065
  3. METFORMIN [Concomitant]
     Active Substance: METFORMIN HYDROCHLORIDE
     Dosage: 500MG PO TID
     Route: 065
  4. EMPAGLIFLOZIN [Concomitant]
     Active Substance: EMPAGLIFLOZIN
     Dosage: 10MG PO QAM
     Route: 065
  5. PANTOPRAZOLE [Concomitant]
     Active Substance: PANTOPRAZOLE
     Dosage: 40MG PO QAM
     Route: 048
  6. INVEGA TRINZA [Concomitant]
     Active Substance: PALIPERIDONE PALMITATE
     Dosage: 525MG Q 3 MONTHS
     Route: 030
  7. ARIPIPRAZOLE. [Concomitant]
     Active Substance: ARIPIPRAZOLE
     Dosage: 5 MG QAM
     Route: 065
     Dates: start: 2010
  8. THYROXINE [Concomitant]
     Active Substance: LEVOTHYROXINE
     Dosage: 0.1MG PO QAM
     Route: 065
  9. CLOZARIL [Suspect]
     Active Substance: CLOZAPINE
     Indication: SCHIZOAFFECTIVE DISORDER
     Dosage: 12.5MG QHS TITRATED TO 100MG
     Route: 048
     Dates: start: 20200324, end: 20200419
  10. DIVALPROEX [Concomitant]
     Active Substance: DIVALPROEX SODIUM
     Dosage: 500 MG QHS
     Route: 065
     Dates: start: 2010

REACTIONS (5)
  - Pyrexia [Recovered/Resolved]
  - Lethargy [Unknown]
  - Tachycardia [Unknown]
  - Tremor [Recovered/Resolved]
  - C-reactive protein increased [Recovering/Resolving]

NARRATIVE: CASE EVENT DATE: 20200417
